FAERS Safety Report 7091616-5 (Version None)
Quarter: 2010Q4

REPORT INFORMATION
  Report Type: 
  Country: None (occurrence: None)
  Receive Date: 20101109
  Receipt Date: 20101028
  Transmission Date: 20110411
  Serious: Yes (Hospitalization)
  Sender: FDA-Public Use
  Company Number: US-CELGENEUS-163-21880-10103047

PATIENT
  Sex: Female
  Weight: 49.486 kg

DRUGS (1)
  1. REVLIMID [Suspect]
     Indication: DIFFUSE LARGE B-CELL LYMPHOMA
     Route: 048
     Dates: start: 20101018, end: 20101024

REACTIONS (4)
  - CLOSTRIDIUM DIFFICILE COLITIS [None]
  - ENTEROCOLITIS [None]
  - HYPOKALAEMIA [None]
  - NEUTROPENIA [None]
